FAERS Safety Report 5340331-4 (Version None)
Quarter: 2007Q2

REPORT INFORMATION
  Report Type: 
  Country: None (occurrence: None)
  Receive Date: 20070531
  Receipt Date: 20070523
  Transmission Date: 20071010
  Serious: Yes (Other)
  Sender: FDA-Public Use
  Company Number: JP-MERCK-0705USA05003

PATIENT
  Age: 75 Year
  Sex: Female

DRUGS (6)
  1. PEPCID RPD [Suspect]
     Indication: GASTRITIS
     Route: 048
     Dates: start: 20070101
  2. COZAAR [Concomitant]
     Route: 048
  3. AMLODIN [Concomitant]
     Route: 048
  4. ALFACALCIDOL [Concomitant]
     Route: 048
  5. PAXIL [Concomitant]
     Route: 048
     Dates: start: 20070101
  6. MAGNESIUM OXIDE [Concomitant]
     Route: 048
     Dates: start: 20070101

REACTIONS (1)
  - NEPHRITIS INTERSTITIAL [None]
